FAERS Safety Report 17605594 (Version 1)
Quarter: 2020Q1

REPORT INFORMATION
  Report Type: Spontaneous
  Country: US (occurrence: US)
  Receive Date: 20200331
  Receipt Date: 20200331
  Transmission Date: 20200409
  Serious: Yes (Disabling)
  Sender: FDA-Public Use
  Company Number: None

PATIENT
  Age: 65 Year
  Sex: Female
  Weight: 91.35 kg

DRUGS (20)
  1. TRAMADOL. [Concomitant]
     Active Substance: TRAMADOL
  2. INVEGA SUSTENNA [Concomitant]
     Active Substance: PALIPERIDONE PALMITATE
  3. VITAMIN D [Concomitant]
     Active Substance: VITAMIN D NOS
  4. DULOXETINE. [Suspect]
     Active Substance: DULOXETINE
     Indication: PAIN
     Dosage: ?          QUANTITY:1 CAPSULE(S);?
     Route: 048
     Dates: start: 20200330
  5. BUPROPION. [Concomitant]
     Active Substance: BUPROPION
  6. DICLOFENAC GEL [Concomitant]
     Active Substance: DICLOFENAC
  7. ATORVASTATIN [Concomitant]
     Active Substance: ATORVASTATIN
  8. VITAMIN B COMPLEX [Concomitant]
     Active Substance: CYANOCOBALAMIN\DEXPANTHENOL\NIACINAMIDE\PYRIDOXINE HYDROCHLORIDE\RIBOFLAVIN 5^-PHOSPHATE SODIUM\THIAMINE HYDROCHLORIDE\VITAMIN B COMPLEX
  9. PALIPERIDONE. [Concomitant]
     Active Substance: PALIPERIDONE
  10. LISINOPRIL. [Concomitant]
     Active Substance: LISINOPRIL
  11. GABAPENTIN. [Concomitant]
     Active Substance: GABAPENTIN
  12. AMLODIPINE [Concomitant]
     Active Substance: AMLODIPINE BESYLATE
  13. MELOXICAM. [Concomitant]
     Active Substance: MELOXICAM
  14. LANTUS [Concomitant]
     Active Substance: INSULIN GLARGINE
  15. TYLENOL FAST-RELEASE [Concomitant]
  16. PREGABALIN. [Concomitant]
     Active Substance: PREGABALIN
  17. PROAIR HFA [Concomitant]
     Active Substance: ALBUTEROL SULFATE
  18. DULOXETINE. [Suspect]
     Active Substance: DULOXETINE
     Indication: DEPRESSION
     Dosage: ?          QUANTITY:1 CAPSULE(S);?
     Route: 048
     Dates: start: 20200330
  19. PANTOPRAZOLE [Concomitant]
     Active Substance: PANTOPRAZOLE
  20. WOMEN^S ALIGN [Concomitant]

REACTIONS (4)
  - Product substitution issue [None]
  - Vision blurred [None]
  - Visual impairment [None]
  - Somnolence [None]

NARRATIVE: CASE EVENT DATE: 20200331
